FAERS Safety Report 18278538 (Version 1)
Quarter: 2020Q3

REPORT INFORMATION
  Report Type: Spontaneous
  Country: CN (occurrence: CN)
  Receive Date: 20200917
  Receipt Date: 20200917
  Transmission Date: 20201103
  Serious: Yes (Hospitalization, Other)
  Sender: FDA-Public Use
  Company Number: CN-PFIZER INC-2020353571

PATIENT
  Age: 41 Year
  Sex: Male
  Weight: 69 kg

DRUGS (13)
  1. FENOFIBRATE. [Suspect]
     Active Substance: FENOFIBRATE
     Indication: BLOOD TRIGLYCERIDES INCREASED
  2. TELBIVUDINE [Suspect]
     Active Substance: TELBIVUDINE
     Indication: TYPE 2 DIABETES MELLITUS
     Dosage: 600 MG, 1X/DAY
     Route: 048
     Dates: start: 20100801, end: 20100824
  3. TELBIVUDINE [Suspect]
     Active Substance: TELBIVUDINE
     Indication: HYPERLIPIDAEMIA
  4. FENOFIBRATE. [Suspect]
     Active Substance: FENOFIBRATE
     Indication: HYPERLIPIDAEMIA
  5. TELBIVUDINE [Suspect]
     Active Substance: TELBIVUDINE
     Indication: CHRONIC HEPATITIS B
  6. CRESTOR [Suspect]
     Active Substance: ROSUVASTATIN CALCIUM
     Indication: DIABETES MELLITUS
  7. TELBIVUDINE [Suspect]
     Active Substance: TELBIVUDINE
     Indication: HYPERTENSION
  8. LIPITOR [Suspect]
     Active Substance: ATORVASTATIN CALCIUM
     Indication: TYPE 2 DIABETES MELLITUS
     Dosage: 20 MG, 1X/DAY
     Route: 048
     Dates: start: 20180724, end: 20200909
  9. LIPITOR [Suspect]
     Active Substance: ATORVASTATIN CALCIUM
     Indication: LIPIDS INCREASED
  10. FENOFIBRATE. [Suspect]
     Active Substance: FENOFIBRATE
     Indication: TYPE 2 DIABETES MELLITUS
     Dosage: 200 MG, 1X/DAY
     Route: 048
     Dates: start: 20191005, end: 20200825
  11. FENOFIBRATE. [Suspect]
     Active Substance: FENOFIBRATE
     Indication: HYPERTENSION
  12. FENOFIBRATE. [Suspect]
     Active Substance: FENOFIBRATE
     Indication: CHRONIC HEPATITIS B
  13. CRESTOR [Suspect]
     Active Substance: ROSUVASTATIN CALCIUM
     Indication: HYPERLIPIDAEMIA
     Dosage: 10 MG, 1X/DAY
     Route: 048
     Dates: start: 20190910, end: 20200824

REACTIONS (5)
  - Rhabdomyolysis [Recovering/Resolving]
  - Muscle atrophy [Recovering/Resolving]
  - Asthenia [Recovering/Resolving]
  - Dry mouth [Unknown]
  - Peripheral nerve injury [Unknown]

NARRATIVE: CASE EVENT DATE: 2020
